FAERS Safety Report 8823262 (Version 2)
Quarter: 2013Q1

REPORT INFORMATION
  Report Type: Spontaneous
  Country: US (occurrence: US)
  Receive Date: 20121003
  Receipt Date: 20130329
  Transmission Date: 20140127
  Serious: Yes (Other)
  Sender: FDA-Public Use
  Company Number: US-GLAXOSMITHKLINE-A0996031A

PATIENT
  Age: 71 Year
  Sex: Male

DRUGS (2)
  1. LOVAZA [Suspect]
     Indication: PRODUCT USED FOR UNKNOWN INDICATION
     Dosage: 1G UNKNOWN
     Route: 048
  2. CHEMOTHERAPY [Concomitant]

REACTIONS (1)
  - Pancreatic carcinoma recurrent [Unknown]
